FAERS Safety Report 7401977-2 (Version None)
Quarter: 2011Q2

REPORT INFORMATION
  Report Type: 
  Country: None (occurrence: None)
  Receive Date: 20110408
  Receipt Date: 20110405
  Transmission Date: 20111010
  Serious: Yes (Other)
  Sender: FDA-Public Use
  Company Number: US-PFIZER INC-2011075580

PATIENT
  Age: 73 Year
  Sex: Female
  Weight: 52.15 kg

DRUGS (3)
  1. LIPITOR [Suspect]
     Indication: BLOOD CHOLESTEROL INCREASED
     Dosage: 10 MG, 1X/DAY
     Route: 048
     Dates: start: 19960101
  2. LIPITOR [Suspect]
     Dosage: 20 MG, 1X/DAY
  3. SYNTHROID [Concomitant]
     Indication: HYPOTHYROIDISM
     Dosage: 75 UG

REACTIONS (2)
  - OSTEOPOROSIS [None]
  - BACK PAIN [None]
